FAERS Safety Report 22121113 (Version 1)
Quarter: 2023Q1

REPORT INFORMATION
  Report Type: Spontaneous
  Country: US (occurrence: US)
  Receive Date: 20230321
  Receipt Date: 20230321
  Transmission Date: 20230418
  Serious: No
  Sender: FDA-Public Use
  Company Number: US-BAYER-2023A030624

PATIENT
  Age: 86 Year
  Sex: Female

DRUGS (1)
  1. GADAVIST [Suspect]
     Active Substance: GADOBUTROL
     Indication: Magnetic resonance imaging
     Dosage: UNK, ONCE
     Dates: start: 20230106, end: 20230106

REACTIONS (5)
  - Nausea [None]
  - Headache [None]
  - Dizziness [None]
  - Feeling hot [None]
  - Insomnia [None]

NARRATIVE: CASE EVENT DATE: 20230110
